FAERS Safety Report 9917457 (Version 1)
Quarter: 2014Q1

REPORT INFORMATION
  Report Type: Spontaneous
  Country: US (occurrence: US)
  Receive Date: 20140221
  Receipt Date: 20140221
  Transmission Date: 20141002
  Serious: Yes (Other)
  Sender: FDA-Public Use
  Company Number: US-PFIZER INC-2014049093

PATIENT
  Age: 66 Year
  Sex: Female

DRUGS (2)
  1. CELECOXIB [Suspect]
     Dosage: UNK
  2. VORICONAZOLE [Suspect]
     Dosage: UNK

REACTIONS (2)
  - Drug hypersensitivity [Unknown]
  - Blister [Unknown]
